FAERS Safety Report 6728636-3 (Version None)
Quarter: 2010Q2

REPORT INFORMATION
  Report Type: 
  Country: None (occurrence: None)
  Receive Date: 20100517
  Receipt Date: 20100511
  Transmission Date: 20101027
  Serious: Yes (Life-Threatening, Hospitalization, Other)
  Sender: FDA-Public Use
  Company Number: DE-ABBOTT-10P-062-0635848-00

PATIENT
  Sex: Male

DRUGS (1)
  1. HUMIRA [Suspect]
     Indication: ANKYLOSING SPONDYLITIS
     Route: 050
     Dates: start: 20061101, end: 20100203

REACTIONS (9)
  - ANAEMIA [None]
  - BLOOD OSMOLARITY DECREASED [None]
  - HAEMORRHAGE [None]
  - HYPONATRAEMIA [None]
  - OMENTUM NEOPLASM [None]
  - PANCREATITIS [None]
  - PANCREATITIS ACUTE [None]
  - PANCREATITIS NECROTISING [None]
  - PLEURAL EFFUSION [None]
